FAERS Safety Report 11457048 (Version 1)
Quarter: 2015Q3

REPORT INFORMATION
  Report Type: Spontaneous
  Country: US (occurrence: None)
  Receive Date: 20150903
  Receipt Date: 20150903
  Transmission Date: 20151125
  Serious: No
  Sender: FDA-Public Use
  Company Number: None

PATIENT
  Age: 70 Year
  Sex: Male
  Weight: 83.5 kg

DRUGS (1)
  1. BEVACIZUMAB (RHUMAB VEGF) [Suspect]
     Active Substance: BEVACIZUMAB
     Dates: start: 20150805

REACTIONS (6)
  - Mental impairment [None]
  - Somnolence [None]
  - Glioblastoma [None]
  - Hypophagia [None]
  - Dysphagia [None]
  - Malignant neoplasm progression [None]

NARRATIVE: CASE EVENT DATE: 20150827
